FAERS Safety Report 16760451 (Version 1)
Quarter: 2019Q3

REPORT INFORMATION
  Report Type: Spontaneous
  Country: US (occurrence: US)
  Receive Date: 20190711
  Receipt Date: 20190711
  Transmission Date: 20191005
  Serious: Yes (Hospitalization)
  Sender: FDA-Public Use
  Company Number: None

PATIENT
  Age: 70 Year
  Sex: Male

DRUGS (1)
  1. LORAZEPAM. [Suspect]
     Active Substance: LORAZEPAM
     Indication: AGITATION
     Route: 042
     Dates: start: 20190328, end: 20190329

REACTIONS (7)
  - Condition aggravated [None]
  - Anaphylactic reaction [None]
  - Delirium [None]
  - Encephalopathy [None]
  - Haemodialysis [None]
  - Blood urea decreased [None]
  - Sepsis [None]

NARRATIVE: CASE EVENT DATE: 20190329
